FAERS Safety Report 16623180 (Version 2)
Quarter: 2019Q3

REPORT INFORMATION
  Report Type: Spontaneous
  Country: DE (occurrence: DE)
  Receive Date: 20190724
  Receipt Date: 20190924
  Transmission Date: 20191004
  Serious: Yes (Hospitalization)
  Sender: FDA-Public Use
  Company Number: DE-SUN PHARMACEUTICAL INDUSTRIES LTD-2019RR-214560

PATIENT
  Age: 62 Year
  Sex: Female

DRUGS (7)
  1. OXYCODON [Concomitant]
     Active Substance: OXYCODONE
     Indication: PRODUCT USED FOR UNKNOWN INDICATION
     Dosage: 10 MG, 1-1-1-1 ()
     Route: 065
  2. PANTOPRAZOL [Concomitant]
     Active Substance: PANTOPRAZOLE SODIUM
     Indication: PRODUCT USED FOR UNKNOWN INDICATION
     Dosage: 40 MG, 1-0-0-0 ()
     Route: 065
  3. METAMIZOL [Concomitant]
     Active Substance: METAMIZOLE SODIUM
     Indication: PRODUCT USED FOR UNKNOWN INDICATION
     Dosage: NK MG, 40-40-40-0, TROPFEN ()
     Route: 065
  4. ZOFRAN 8MG [Concomitant]
     Indication: PRODUCT USED FOR UNKNOWN INDICATION
     Dosage: 8 MG, 1-1-1-0 ()
     Route: 065
  5. GEMCITABINE. [Suspect]
     Active Substance: GEMCITABINE
     Indication: PRODUCT USED FOR UNKNOWN INDICATION
     Dosage: NK MG, NK ()
     Route: 065
  6. CISPLATIN. [Suspect]
     Active Substance: CISPLATIN
     Indication: PRODUCT USED FOR UNKNOWN INDICATION
     Dosage: NK MG, NK ()
     Route: 065
  7. MCP [Concomitant]
     Active Substance: METOCLOPRAMIDE HYDROCHLORIDE
     Indication: PRODUCT USED FOR UNKNOWN INDICATION
     Dosage: 10 MG, 1-1-1-0 ()
     Route: 065

REACTIONS (3)
  - Pyrexia [Recovered/Resolved]
  - Chills [Recovered/Resolved]
  - Decreased appetite [Recovered/Resolved]
